FAERS Safety Report 6997645-1 (Version None)
Quarter: 2010Q3

REPORT INFORMATION
  Report Type: 
  Country: None (occurrence: None)
  Receive Date: 20100918
  Receipt Date: 20091112
  Transmission Date: 20110219
  Serious: No
  Sender: FDA-Public Use
  Company Number: US-WYE-H12160809

PATIENT
  Sex: Female

DRUGS (7)
  1. PRISTIQ [Suspect]
     Indication: DEPRESSION
     Route: 048
     Dates: start: 20091001
  2. PRISTIQ [Suspect]
     Indication: ANXIETY
  3. BENICAR [Concomitant]
  4. NEXIUM [Concomitant]
  5. WELLBUTRIN [Concomitant]
  6. CELEBREX [Concomitant]
  7. SYNTHROID [Concomitant]

REACTIONS (2)
  - RASH ERYTHEMATOUS [None]
  - RASH PRURITIC [None]
